FAERS Safety Report 9486593 (Version 1)
Quarter: 2013Q3

REPORT INFORMATION
  Report Type: Spontaneous
  Country: US (occurrence: None)
  Receive Date: 20130827
  Receipt Date: 20130827
  Transmission Date: 20140515
  Serious: Yes (Other)
  Sender: FDA-Public Use
  Company Number: None

PATIENT
  Age: 24 Year
  Sex: Female
  Weight: 129.28 kg

DRUGS (7)
  1. NEXPLANON [Suspect]
     Indication: CONTRACEPTION
     Dosage: INSERTED IN UPPER ARM.
     Dates: start: 20130207, end: 201306
  2. HYDROXAZINE [Concomitant]
  3. LORAZAPM [Concomitant]
  4. EVENING PRIMROSE OIL [Concomitant]
  5. CALCIUM [Concomitant]
  6. CLARITAM [Concomitant]
  7. PRILOCEC [Concomitant]

REACTIONS (6)
  - Weight increased [None]
  - Alopecia [None]
  - Rash [None]
  - Urticaria [None]
  - Furuncle [None]
  - Fungal skin infection [None]
